FAERS Safety Report 5558161-7 (Version None)
Quarter: 2007Q4

REPORT INFORMATION
  Report Type: 
  Country: None (occurrence: None)
  Receive Date: 20071214
  Receipt Date: 20071204
  Transmission Date: 20080405
  Serious: Yes (Hospitalization, Other)
  Sender: FDA-Public Use
  Company Number: JP-PFIZER INC-2006119510

PATIENT
  Age: 89 Year
  Sex: Female

DRUGS (6)
  1. LIPITOR [Suspect]
     Indication: HYPERCHOLESTEROLAEMIA
     Dosage: DAILY DOSE:10MG
     Route: 048
     Dates: start: 20060725, end: 20060823
  2. PANALDINE [Suspect]
     Indication: ANGINA PECTORIS
     Dosage: DAILY DOSE:200MG
     Route: 048
     Dates: start: 20060608, end: 20060906
  3. VALSARTAN [Suspect]
     Indication: HYPERTENSION
     Dosage: DAILY DOSE:160MG
     Route: 048
     Dates: start: 20060601, end: 20060913
  4. PLETAL [Suspect]
     Indication: STENT PLACEMENT
     Dosage: DAILY DOSE:200MG
     Route: 048
     Dates: start: 20060906, end: 20060913
  5. NIFEDIPINE [Concomitant]
     Route: 048
  6. ASPIRIN [Concomitant]
     Route: 048

REACTIONS (3)
  - DERMATITIS EXFOLIATIVE [None]
  - EOSINOPHILIA [None]
  - PALPITATIONS [None]
